FAERS Safety Report 9629488 (Version 1)
Quarter: 2013Q4

REPORT INFORMATION
  Report Type: Spontaneous
  Country: US (occurrence: US)
  Receive Date: 20131017
  Receipt Date: 20131017
  Transmission Date: 20140711
  Serious: Yes (Hospitalization, Other)
  Sender: FDA-Public Use
  Company Number: US-TEVA-438531USA

PATIENT
  Sex: Male
  Weight: 1.8 kg

DRUGS (1)
  1. BACLOFEN [Suspect]
     Route: 064

REACTIONS (2)
  - Drug withdrawal syndrome neonatal [Recovered/Resolved]
  - Live birth [Recovered/Resolved]
